FAERS Safety Report 7040551-7 (Version None)
Quarter: 2010Q4

REPORT INFORMATION
  Report Type: 
  Country: None (occurrence: None)
  Receive Date: 20101006
  Receipt Date: 20100920
  Transmission Date: 20110411
  Serious: Yes (Disabling, Other)
  Sender: FDA-Public Use
  Company Number: ACO_01862_2010

PATIENT
  Sex: Female
  Weight: 99.7913 kg

DRUGS (6)
  1. AMPYRA [Suspect]
     Indication: GAIT DISTURBANCE
     Dosage: (10 MG BID ORAL)
     Route: 048
     Dates: start: 20100626, end: 20100817
  2. COPAXONE [Concomitant]
  3. BACLOFEN [Concomitant]
  4. HYDROCHLOROTHIAZIDE [Concomitant]
  5. FLUOXETINE [Concomitant]
  6. ZOLPIDEM [Concomitant]

REACTIONS (14)
  - ABASIA [None]
  - ABDOMINAL DISCOMFORT [None]
  - ARTHRALGIA [None]
  - BACK PAIN [None]
  - BALANCE DISORDER [None]
  - BURNING SENSATION [None]
  - DEPRESSION [None]
  - DIZZINESS [None]
  - DRY THROAT [None]
  - HEADACHE [None]
  - INSOMNIA [None]
  - MUSCLE TWITCHING [None]
  - NASAL DRYNESS [None]
  - PAIN IN EXTREMITY [None]
